FAERS Safety Report 9178026 (Version 1)
Quarter: 2012Q4

REPORT INFORMATION
  Report Type: 
  Country: US (occurrence: US)
  Receive Date: 20121018
  Receipt Date: 20121018
  Transmission Date: 20130627
  Serious: Yes (Hospitalization, Other)
  Sender: FDA-Public Use
  Company Number: US-RB-045655-12

PATIENT
  Sex: Male

DRUGS (2)
  1. GENERIC BUPRENORPHINE [Suspect]
     Indication: DRUG DEPENDENCE
     Route: 064
     Dates: start: 201204, end: 201209
  2. NICOTINE [Suspect]
     Indication: NICOTINE DEPENDENCE
     Dosage: Dose details not provided
     Route: 064
     Dates: start: 2012, end: 201209

REACTIONS (3)
  - Premature baby [Recovered/Resolved]
  - Drug withdrawal syndrome neonatal [Not Recovered/Not Resolved]
  - Foetal exposure during pregnancy [Recovered/Resolved]
